FAERS Safety Report 9423786 (Version 2)
Quarter: 2013Q3

REPORT INFORMATION
  Report Type: Report from Study
  Country: AU (occurrence: AU)
  Receive Date: 20130728
  Receipt Date: 20130802
  Transmission Date: 20140515
  Serious: Yes (Death, Other)
  Sender: FDA-Public Use
  Company Number: PHHY2013AU079843

PATIENT
  Sex: Female

DRUGS (11)
  1. ACLASTA [Suspect]
     Indication: OSTEOPOROSIS
     Dosage: 5 MG
     Route: 042
     Dates: start: 20111013
  2. ACLASTA [Suspect]
     Dosage: 5 MG
     Route: 042
     Dates: start: 20120914
  3. ANTIARRHYTHMIC AGENTS [Concomitant]
  4. VERAPAMIL [Concomitant]
  5. ISCOVER [Concomitant]
  6. PANETS [Concomitant]
  7. SPIRIVA [Concomitant]
  8. ORDINE [Concomitant]
  9. SEREPAX [Concomitant]
  10. ALPHAPRES [Concomitant]
  11. SYMBICORT [Concomitant]

REACTIONS (4)
  - Emphysema [Fatal]
  - Respiratory failure [Fatal]
  - Circulatory collapse [Unknown]
  - Loss of consciousness [Unknown]
